FAERS Safety Report 16300162 (Version 2)
Quarter: 2019Q2

REPORT INFORMATION
  Report Type: Spontaneous
  Country: BR (occurrence: BR)
  Receive Date: 20190510
  Receipt Date: 20190513
  Transmission Date: 20190711
  Serious: Yes (Death, Hospitalization, Other)
  Sender: FDA-Public Use
  Company Number: BR-ABBVIE-19K-020-2777619-00

PATIENT
  Age: 89 Year
  Sex: Female
  Weight: 57 kg

DRUGS (5)
  1. VENETOCLAX. [Suspect]
     Active Substance: VENETOCLAX
     Indication: ACUTE MYELOID LEUKAEMIA
     Dosage: SCALING DOSE 100MG
     Route: 048
     Dates: start: 20190320, end: 2019
  2. ANSENTRON [Suspect]
     Active Substance: ONDANSETRON HYDROCHLORIDE
     Indication: ACUTE MYELOID LEUKAEMIA
     Route: 042
     Dates: start: 20190315, end: 20190320
  3. VENETOCLAX. [Suspect]
     Active Substance: VENETOCLAX
     Dosage: SCALING DOSE 400MG
     Route: 048
     Dates: start: 2019, end: 20190408
  4. VENETOCLAX. [Suspect]
     Active Substance: VENETOCLAX
     Dosage: SCALING DOSE
     Route: 048
     Dates: start: 2019, end: 2019
  5. DACOGEN [Suspect]
     Active Substance: DECITABINE
     Indication: ACUTE MYELOID LEUKAEMIA
     Route: 042
     Dates: start: 20190315, end: 20190320

REACTIONS (8)
  - Death [Fatal]
  - Hospitalisation [Unknown]
  - Cerebrovascular accident [Unknown]
  - Immunodeficiency [Unknown]
  - Allergic transfusion reaction [Unknown]
  - Palpitations [Unknown]
  - Platelet count decreased [Unknown]
  - Erythema [Unknown]

NARRATIVE: CASE EVENT DATE: 201904
